FAERS Safety Report 23798221 (Version 1)
Quarter: 2024Q2

REPORT INFORMATION
  Report Type: Spontaneous
  Country: ES (occurrence: ES)
  Receive Date: 20240430
  Receipt Date: 20240430
  Transmission Date: 20240716
  Serious: Yes (Hospitalization)
  Sender: FDA-Public Use
  Company Number: None

PATIENT
  Age: 78 Year
  Sex: Male

DRUGS (2)
  1. BAVENCIO [Suspect]
     Active Substance: AVELUMAB
     Indication: Transitional cell carcinoma
     Dosage: STRENGTH: BAVENCIO 20 MG/ML, CONCENTRATE, SOLUTION FOR PERFUSION, 1 VIAL 10 ML
     Route: 042
     Dates: start: 20240208
  2. BAVENCIO [Suspect]
     Active Substance: AVELUMAB
     Dosage: STRENGTH: BAVENCIO 20 MG/ML, 1 VIAL 10 ML
     Route: 042
     Dates: start: 20240403, end: 20240403

REACTIONS (3)
  - Presyncope [Recovering/Resolving]
  - Hypotension [Recovering/Resolving]
  - Rash [Recovering/Resolving]

NARRATIVE: CASE EVENT DATE: 20240403
